FAERS Safety Report 21835139 (Version 2)
Quarter: 2023Q1

REPORT INFORMATION
  Report Type: Report from Study
  Country: US (occurrence: US)
  Receive Date: 20230109
  Receipt Date: 20230120
  Transmission Date: 20230418
  Serious: Yes (Hospitalization, Other)
  Sender: FDA-Public Use
  Company Number: US-ABBVIE-4259552

PATIENT
  Age: 51 Year
  Sex: Male

DRUGS (1)
  1. HUMIRA [Suspect]
     Active Substance: ADALIMUMAB
     Indication: Hidradenitis
     Dosage: CITRATE FREE
     Route: 058
     Dates: start: 20220819

REACTIONS (3)
  - Thrombosis [Recovered/Resolved]
  - Scrotal abscess [Recovering/Resolving]
  - Skin graft [Unknown]

NARRATIVE: CASE EVENT DATE: 20221125
